FAERS Safety Report 6466426-X (Version None)
Quarter: 2009Q4

REPORT INFORMATION
  Report Type: 
  Country: None (occurrence: None)
  Receive Date: 20091201
  Receipt Date: 20091201
  Transmission Date: 20100525
  Serious: Yes (Other)
  Sender: FDA-Public Use
  Company Number: None

PATIENT
  Age: 58 Year
  Sex: Male
  Weight: 99.7913 kg

DRUGS (2)
  1. COPPERTONE ULTAGUARD 50 SPF SCHERINGPLOUGH [Suspect]
     Indication: PROPHYLAXIS
     Dosage: SPARINGLY ONCE TOP
     Route: 061
     Dates: start: 20091120, end: 20091120
  2. COPPERTONE ULTAGUARD 50 SPF SCHERINGPLOUGH [Suspect]
     Indication: SUNBURN
     Dosage: SPARINGLY ONCE TOP
     Route: 061
     Dates: start: 20091120, end: 20091120

REACTIONS (1)
  - APPLICATION SITE RASH [None]
